FAERS Safety Report 18661738 (Version 1)
Quarter: 2020Q4

REPORT INFORMATION
  Report Type: Spontaneous
  Country: AU (occurrence: AU)
  Receive Date: 20201224
  Receipt Date: 20201224
  Transmission Date: 20210114
  Serious: Yes (Other)
  Sender: FDA-Public Use
  Company Number: AU-FRESENIUS KABI-FK202013903

PATIENT
  Age: 57 Year
  Sex: Male

DRUGS (1)
  1. PACLITAXEL (MANUFACTURER UNKNOWN) [Suspect]
     Active Substance: PACLITAXEL
     Indication: LUNG ADENOCARCINOMA STAGE III
     Route: 065

REACTIONS (1)
  - Kounis syndrome [Recovered/Resolved]
